FAERS Safety Report 17295041 (Version 4)
Quarter: 2021Q1

REPORT INFORMATION
  Report Type: Report from Study
  Country: CA (occurrence: CA)
  Receive Date: 20200121
  Receipt Date: 20210202
  Transmission Date: 20210419
  Serious: Yes (Death, Hospitalization, Other)
  Sender: FDA-Public Use
  Company Number: PHHY2019CA003069

PATIENT
  Age: 64 Year
  Sex: Male

DRUGS (2)
  1. REVOLADE [Suspect]
     Active Substance: ELTROMBOPAG OLAMINE
     Indication: IMMUNE THROMBOCYTOPENIA
     Dosage: 50 MG
     Route: 048
     Dates: start: 20181204
  2. REVOLADE [Suspect]
     Active Substance: ELTROMBOPAG OLAMINE
     Dosage: 50 MG, QD
     Route: 048
     Dates: start: 20200823

REACTIONS (11)
  - Constipation [Recovering/Resolving]
  - Platelet count abnormal [Unknown]
  - Fall [Unknown]
  - Abdominal distension [Not Recovered/Not Resolved]
  - Conjunctival hyperaemia [Unknown]
  - Localised infection [Unknown]
  - Eye haemorrhage [Unknown]
  - Neuropathy peripheral [Unknown]
  - Platelet count increased [Unknown]
  - Death [Fatal]
  - Platelet count decreased [Unknown]

NARRATIVE: CASE EVENT DATE: 20201207
